FAERS Safety Report 6298377-8 (Version None)
Quarter: 2009Q3

REPORT INFORMATION
  Report Type: 
  Country: None (occurrence: None)
  Receive Date: 20090805
  Receipt Date: 20090804
  Transmission Date: 20100115
  Serious: Yes (Death, Hospitalization)
  Sender: FDA-Public Use
  Company Number: A0800506A

PATIENT
  Age: 60 Year
  Sex: Male

DRUGS (1)
  1. AVANDIA [Suspect]
     Dates: start: 19990101, end: 20010119

REACTIONS (2)
  - ACUTE MYOCARDIAL INFARCTION [None]
  - MYOCARDIAL INFARCTION [None]
